FAERS Safety Report 9442257 (Version 1)
Quarter: 2013Q3

REPORT INFORMATION
  Report Type: Spontaneous
  Country: GB (occurrence: GB)
  Receive Date: 20130806
  Receipt Date: 20130806
  Transmission Date: 20140515
  Serious: Yes (Hospitalization)
  Sender: FDA-Public Use
  Company Number: GB-EISAI INC-E2020-12707-SPO-GB

PATIENT
  Age: 86 Year
  Sex: Male

DRUGS (2)
  1. ARICEPT [Suspect]
     Indication: DEMENTIA ALZHEIMER^S TYPE
     Route: 048
     Dates: end: 201307
  2. ARICEPT [Suspect]
     Dates: start: 201307

REACTIONS (2)
  - Ophthalmic herpes zoster [Unknown]
  - Drug withdrawal syndrome [Unknown]
